FAERS Safety Report 9239635 (Version 6)
Quarter: 2016Q3

REPORT INFORMATION
  Report Type: Spontaneous
  Country: US (occurrence: US)
  Receive Date: 20130418
  Receipt Date: 20160712
  Transmission Date: 20161109
  Serious: No
  Sender: FDA-Public Use
  Company Number: US-009507513-1304USA008274

PATIENT
  Sex: Male

DRUGS (2)
  1. PROPECIA [Suspect]
     Active Substance: FINASTERIDE
     Dosage: 1 MG, QD
     Route: 048
     Dates: start: 2009, end: 20120316
  2. PROPECIA [Suspect]
     Active Substance: FINASTERIDE
     Indication: ANDROGENETIC ALOPECIA
     Dosage: 1 MG, QD
     Route: 048
     Dates: start: 20070703, end: 20081217

REACTIONS (15)
  - Anxiety [Not Recovered/Not Resolved]
  - Asthma [Recovering/Resolving]
  - Lower urinary tract symptoms [Unknown]
  - Fatigue [Unknown]
  - Pollakiuria [Not Recovered/Not Resolved]
  - Depression [Not Recovered/Not Resolved]
  - Disorientation [Not Recovered/Not Resolved]
  - Sexual dysfunction [Not Recovered/Not Resolved]
  - Erectile dysfunction [Unknown]
  - Prostatitis [Unknown]
  - Weight increased [Unknown]
  - Bladder neck obstruction [Unknown]
  - Sexual relationship change [Not Recovered/Not Resolved]
  - Seborrhoeic dermatitis [Unknown]
  - Amnesia [Not Recovered/Not Resolved]

NARRATIVE: CASE EVENT DATE: 2007
